FAERS Safety Report 13038471 (Version 2)
Quarter: 2017Q1

REPORT INFORMATION
  Report Type: Spontaneous
  Country: US (occurrence: US)
  Receive Date: 20161219
  Receipt Date: 20170118
  Transmission Date: 20170428
  Serious: No
  Sender: FDA-Public Use
  Company Number: US-BIOGEN-2016BI00286928

PATIENT
  Age: 57 Year
  Sex: Female

DRUGS (1)
  1. TECFIDERA [Suspect]
     Active Substance: DIMETHYL FUMARATE
     Indication: MULTIPLE SCLEROSIS
     Dosage: STARTING DOSE
     Route: 048
     Dates: start: 20160628, end: 20161125

REACTIONS (11)
  - Herpes zoster [Unknown]
  - Neck pain [Unknown]
  - Dry mouth [Not Recovered/Not Resolved]
  - Ear pain [Unknown]
  - Dehydration [Unknown]
  - Headache [Unknown]
  - Musculoskeletal disorder [Unknown]
  - Hypersensitivity [Unknown]
  - Stress [Unknown]
  - Dry eye [Not Recovered/Not Resolved]
  - Prescribed underdose [Unknown]

NARRATIVE: CASE EVENT DATE: 20161120
